FAERS Safety Report 16589322 (Version 1)
Quarter: 2019Q3

REPORT INFORMATION
  Report Type: Spontaneous
  Country: DE (occurrence: DE)
  Receive Date: 20190718
  Receipt Date: 20190718
  Transmission Date: 20191004
  Serious: Yes (Death, Hospitalization)
  Sender: FDA-Public Use
  Company Number: DE-TEVA-2019-DE-1077983

PATIENT
  Age: 56 Year
  Sex: Male
  Weight: 145 kg

DRUGS (2)
  1. SPIRONOLACTON [Suspect]
     Active Substance: SPIRONOLACTONE
     Dosage: 50 MG, 1-0-0-0,
     Route: 048
     Dates: start: 20180521
  2. FUROSEMID [Suspect]
     Active Substance: FUROSEMIDE
     Dosage: 40 MG, 1-1-0-0
     Route: 048
     Dates: end: 20180521

REACTIONS (5)
  - Oedema peripheral [Unknown]
  - Product administration error [Unknown]
  - Weight increased [Unknown]
  - General physical health deterioration [Unknown]
  - Dyspnoea [Unknown]
